FAERS Safety Report 16250573 (Version 4)
Quarter: 2022Q1

REPORT INFORMATION
  Report Type: Spontaneous
  Country: US (occurrence: US)
  Receive Date: 20190429
  Receipt Date: 20220128
  Transmission Date: 20220423
  Serious: Yes (Hospitalization, Other)
  Sender: FDA-Public Use
  Company Number: US-PFIZER INC-2019084473

PATIENT
  Age: 46 Year
  Sex: Female
  Weight: 93 kg

DRUGS (2)
  1. VENLAFAXINE HCL [Suspect]
     Active Substance: VENLAFAXINE HYDROCHLORIDE
     Indication: Depression
     Dosage: 75MG AND 150MG QD OF EACH
     Route: 048
     Dates: start: 2005, end: 201902
  2. VENLAFAXINE HCL [Suspect]
     Active Substance: VENLAFAXINE HYDROCHLORIDE
     Indication: Anxiety

REACTIONS (8)
  - Seizure [Unknown]
  - Psychogenic seizure [Not Recovered/Not Resolved]
  - Hydrocephalus [Unknown]
  - Drug ineffective [Unknown]
  - Affect lability [Recovered/Resolved]
  - Crying [Recovered/Resolved]
  - Gait disturbance [Unknown]
  - Illness [Unknown]

NARRATIVE: CASE EVENT DATE: 20160701
